FAERS Safety Report 4371138-2 (Version None)
Quarter: 2004Q2

REPORT INFORMATION
  Report Type: 
  Country: None (occurrence: None)
  Receive Date: 20040601
  Receipt Date: 20040520
  Transmission Date: 20050107
  Serious: Yes (Hospitalization)
  Sender: FDA-Public Use
  Company Number: US-JNJFOC-20040504745

PATIENT
  Age: 62 Year
  Sex: Female
  Weight: 88.905 kg

DRUGS (11)
  1. INFLIXIMAB (INFLIXIMAB, RECOMBINANT) LYOPHILIZED POWDER [Suspect]
     Indication: RHEUMATOID ARTHRITIS
     Dosage: 4 VIALS
     Dates: start: 20010301
  2. ASPIRIN [Concomitant]
  3. CARDIZEM [Concomitant]
  4. DARVOCET N (PROPACET) TABLETS [Concomitant]
  5. EVISTA [Concomitant]
  6. FOLIC ACID [Concomitant]
  7. METHOTREXATE [Concomitant]
  8. MULTIVITAMIN (MULTIVITAMINS) [Concomitant]
  9. PAXIL [Concomitant]
  10. SYNTHROID [Concomitant]
  11. FEMARA [Concomitant]

REACTIONS (1)
  - CHOLECYSTECTOMY [None]
